FAERS Safety Report 7577956-1 (Version None)
Quarter: 2011Q2

REPORT INFORMATION
  Report Type: 
  Country: None (occurrence: None)
  Receive Date: 20110628
  Receipt Date: 20110617
  Transmission Date: 20111010
  Serious: Yes (Hospitalization)
  Sender: FDA-Public Use
  Company Number: DE-ROCHE-784201

PATIENT
  Sex: Female
  Weight: 80 kg

DRUGS (3)
  1. ZOMETA [Concomitant]
     Dates: start: 20091008, end: 20110407
  2. DOCETAXEL [Suspect]
     Dosage: DOSE FORM:INFUSION.DATE OF LAST DOSE PRIOR TO SAE:29 MARCH 2011.
     Route: 042
     Dates: start: 20091201
  3. BEVACIZUMAB [Suspect]
     Dosage: DOSE FORM:INFUSION.DATE OF LAST DOSE PRIOR TO SAE:29 MARCH 2011.
     Route: 042
     Dates: start: 20091201

REACTIONS (1)
  - PLEURAL EFFUSION [None]
